FAERS Safety Report 25623100 (Version 1)
Quarter: 2025Q3

REPORT INFORMATION
  Report Type: Report from Study
  Country: US (occurrence: US)
  Receive Date: 20250730
  Receipt Date: 20250730
  Transmission Date: 20251021
  Serious: Yes (Hospitalization, Other)
  Sender: ABBVIE
  Company Number: US-ABBVIE-6392532

PATIENT
  Age: 54 Year
  Sex: Female

DRUGS (1)
  1. SKYRIZI [Suspect]
     Active Substance: RISANKIZUMAB-RZAA
     Indication: Crohn^s disease
     Route: 058
     Dates: start: 20240202

REACTIONS (4)
  - Decubitus ulcer [Recovered/Resolved]
  - Coma [Recovered/Resolved]
  - Hypersensitivity [Unknown]
  - Pneumonia streptococcal [Unknown]

NARRATIVE: CASE EVENT DATE: 20240202
